FAERS Safety Report 5352837-2 (Version None)
Quarter: 2007Q2

REPORT INFORMATION
  Report Type: 
  Country: None (occurrence: None)
  Receive Date: 20070611
  Receipt Date: 20070531
  Transmission Date: 20071010
  Serious: Yes (Other)
  Sender: FDA-Public Use
  Company Number: US-ELI_LILLY_AND_COMPANY-US200706000086

PATIENT
  Age: 30 Year
  Sex: Male

DRUGS (3)
  1. ZYPREXA ZYDIS [Suspect]
     Indication: SCHIZOAFFECTIVE DISORDER
     Dosage: 30 MG, DAILY (1/D)
  2. ATIVAN [Concomitant]
  3. COGENTIN [Concomitant]

REACTIONS (5)
  - GRANULOCYTE COUNT DECREASED [None]
  - HEPATITIS B POSITIVE [None]
  - LIVER FUNCTION TEST ABNORMAL [None]
  - PRESCRIBED OVERDOSE [None]
  - WHITE BLOOD CELL COUNT DECREASED [None]
